FAERS Safety Report 18332415 (Version 11)
Quarter: 2022Q3

REPORT INFORMATION
  Report Type: Report from Study
  Country: CA (occurrence: CA)
  Receive Date: 20200930
  Receipt Date: 20220830
  Transmission Date: 20221026
  Serious: Yes (Life-Threatening, Hospitalization, Other)
  Sender: FDA-Public Use
  Company Number: CA-BRISTOL-MYERS SQUIBB COMPANY-BMS-2020-079039

PATIENT
  Age: 60 Year
  Sex: Male
  Weight: 69.8 kg

DRUGS (15)
  1. RANITIDINE [Concomitant]
     Active Substance: RANITIDINE
     Indication: Product used for unknown indication
     Dosage: ONGOING
     Route: 048
     Dates: start: 20180920
  2. LEVOTHYROXINE [Concomitant]
     Active Substance: LEVOTHYROXINE
     Indication: Hypothyroidism
     Dosage: ONGOING
     Route: 048
     Dates: start: 20200115
  3. LEVOTHYROXINE [Concomitant]
     Active Substance: LEVOTHYROXINE
     Dosage: 1 DF= 125 NOS, ONGOING
     Route: 048
     Dates: start: 20200507
  4. PANTOPRAZOLE [Concomitant]
     Active Substance: PANTOPRAZOLE
     Indication: Product used for unknown indication
     Dosage: ONGOING
     Route: 048
     Dates: start: 20200327
  5. BENADRYL [Concomitant]
     Active Substance: DIPHENHYDRAMINE HYDROCHLORIDE
     Indication: Pruritus
     Dosage: ONGOING
     Route: 048
     Dates: start: 20181227
  6. IPRATROPIUM [Concomitant]
     Active Substance: IPRATROPIUM
     Indication: Chronic obstructive pulmonary disease
     Dosage: 1 DOSAGE FORM= 40 UNITS NOS, ONGOING
     Route: 055
     Dates: start: 20200506
  7. ALBUTEROL [Concomitant]
     Active Substance: ALBUTEROL
     Indication: Chronic obstructive pulmonary disease
     Dosage: 1 DOSAGE FORM= 200 UNITS NOS, ONGOING
     Route: 055
     Dates: start: 20200506
  8. RUPATADINE [Concomitant]
     Active Substance: RUPATADINE
     Indication: Urticaria
     Dosage: ONGOING
     Route: 048
     Dates: start: 20200603
  9. SYMBICORT [Concomitant]
     Active Substance: BUDESONIDE\FORMOTEROL FUMARATE DIHYDRATE
     Indication: Chronic obstructive pulmonary disease
     Dosage: 1 DF= 6 UNITS NOS, ONGOING
     Route: 055
     Dates: start: 20200506
  10. BETAMETHASONE VALERATE [Concomitant]
     Active Substance: BETAMETHASONE VALERATE
     Indication: Rash erythematous
     Dosage: 1 DF= 0.1 NOS, ONGOING
     Route: 061
     Dates: start: 20200909
  11. TYLENOL [Concomitant]
     Active Substance: ACETAMINOPHEN
     Indication: Muscle strain
     Route: 048
     Dates: start: 20200907, end: 20200916
  12. TYLENOL [Concomitant]
     Active Substance: ACETAMINOPHEN
     Route: 048
     Dates: start: 20200916, end: 20200917
  13. TYLENOL [Concomitant]
     Active Substance: ACETAMINOPHEN
     Dosage: ONGOING
     Route: 048
     Dates: start: 20200918
  14. IBUPROFEN [Concomitant]
     Active Substance: IBUPROFEN
     Indication: Muscle strain
     Route: 048
     Dates: start: 20200907, end: 20200916
  15. TYLENOL WITH CODEINE [Concomitant]
     Active Substance: ACETAMINOPHEN\CODEINE PHOSPHATE
     Indication: Muscle strain
     Route: 048
     Dates: start: 20200916, end: 20200917

REACTIONS (1)
  - Acquired haemophilia [Recovered/Resolved]

NARRATIVE: CASE EVENT DATE: 20200923
